FAERS Safety Report 13343288 (Version 3)
Quarter: 2017Q1

REPORT INFORMATION
  Report Type: Spontaneous
  Country: KR (occurrence: KR)
  Receive Date: 20170316
  Receipt Date: 20170327
  Transmission Date: 20170428
  Serious: Yes (Life-Threatening, Hospitalization, Other)
  Sender: FDA-Public Use
  Company Number: KR-PFIZER INC-2017114531

PATIENT
  Age: 57 Year
  Sex: Female

DRUGS (2)
  1. METHYLPREDNISOLONE SODIUM SUCCINATE. [Suspect]
     Active Substance: METHYLPREDNISOLONE SODIUM SUCCINATE
     Indication: THROMBOTIC MICROANGIOPATHY
     Dosage: 1 MG/KG
  2. METHYLPREDNISOLONE SODIUM SUCCINATE. [Suspect]
     Active Substance: METHYLPREDNISOLONE SODIUM SUCCINATE
     Dosage: 10 MG EVERY 5 DAYS

REACTIONS (1)
  - Encephalitis viral [Not Recovered/Not Resolved]
